FAERS Safety Report 7151409-7 (Version None)
Quarter: 2010Q4

REPORT INFORMATION
  Report Type: 
  Country: None (occurrence: None)
  Receive Date: 20101210
  Receipt Date: 20101201
  Transmission Date: 20110411
  Serious: Yes (Disabling)
  Sender: FDA-Public Use
  Company Number: US-MERCK-1012USA00865

PATIENT
  Sex: Female

DRUGS (6)
  1. ZETIA [Suspect]
     Indication: BLOOD CHOLESTEROL
     Route: 048
     Dates: end: 20101130
  2. SIMVASTATIN [Concomitant]
     Route: 048
  3. PROPRANOLOL HYDROCHLORIDE [Suspect]
     Route: 065
  4. COREG [Concomitant]
     Route: 065
  5. METFORMIN [Concomitant]
     Route: 065
  6. QUINAPRIL HYDROCHLORIDE [Concomitant]
     Route: 065

REACTIONS (2)
  - MYALGIA [None]
  - URINARY CASTS [None]
